FAERS Safety Report 20160791 (Version 2)
Quarter: 2021Q4

REPORT INFORMATION
  Report Type: Spontaneous
  Country: US (occurrence: US)
  Receive Date: 20211208
  Receipt Date: 20211215
  Transmission Date: 20220304
  Serious: Yes (Hospitalization, Other)
  Sender: FDA-Public Use
  Company Number: US-PFIZER INC-202101666514

PATIENT
  Age: 42 Year
  Sex: Male

DRUGS (1)
  1. ERYTHROMYCIN [Suspect]
     Active Substance: ERYTHROMYCIN
     Indication: Gastrointestinal disorder
     Dosage: UNK

REACTIONS (4)
  - Intestinal pseudo-obstruction [Recovered/Resolved]
  - Renal injury [Recovered/Resolved]
  - Megacolon [Recovered/Resolved]
  - Clostridium difficile colitis [Recovered/Resolved]
